FAERS Safety Report 8416866-4 (Version None)
Quarter: 2012Q2

REPORT INFORMATION
  Report Type: 
  Country: None (occurrence: None)
  Receive Date: 20120606
  Receipt Date: 20120605
  Transmission Date: 20120825
  Serious: Yes (Death)
  Sender: FDA-Public Use
  Company Number: US-PFIZER INC-2009US-20789

PATIENT
  Age: 40 Year
  Sex: Male

DRUGS (7)
  1. COCAINE [Suspect]
     Dosage: UNK
     Route: 065
  2. FENTANYL [Suspect]
     Dosage: UNK
     Route: 048
  3. POTASSIUM [Suspect]
     Dosage: UNK
     Route: 048
  4. ETHANOL [Suspect]
     Dosage: UNK
     Route: 048
  5. HYDROCODONE BITARTRATE + ACETAMINOPHEN [Suspect]
     Dosage: UNK
     Route: 048
  6. DIURETICS [Suspect]
     Dosage: UNK
     Route: 048
  7. VERAPAMIL HCL [Suspect]
     Dosage: UNK
     Route: 048

REACTIONS (4)
  - COMPLETED SUICIDE [None]
  - CARDIO-RESPIRATORY ARREST [None]
  - TOXICITY TO VARIOUS AGENTS [None]
  - INTENTIONAL OVERDOSE [None]
